FAERS Safety Report 5935518-3 (Version None)
Quarter: 2008Q4

REPORT INFORMATION
  Report Type: 
  Country: None (occurrence: None)
  Receive Date: 20081030
  Receipt Date: 20081002
  Transmission Date: 20090506
  Serious: No
  Sender: FDA-Public Use
  Company Number: US-BAYER-200810846BCC

PATIENT
  Age: 61 Year
  Sex: Female
  Weight: 73 kg

DRUGS (9)
  1. ALEVE (CAPLET) [Suspect]
     Indication: ARTHRALGIA
     Dosage: UNIT DOSE: 220 MG
     Route: 048
     Dates: start: 20020101
  2. LIPITOR [Concomitant]
  3. ATENOLOL [Concomitant]
  4. CENTRUM SILVER [Concomitant]
  5. GABAPENTIN [Concomitant]
  6. ASCORBIC ACID [Concomitant]
  7. GLUCOSAMINE [Concomitant]
  8. CALTRATE [Concomitant]
  9. DARVOCET [Concomitant]

REACTIONS (2)
  - DYSPEPSIA [None]
  - GASTROOESOPHAGEAL REFLUX DISEASE [None]
